FAERS Safety Report 14305178 (Version 1)
Quarter: 2017Q4

REPORT INFORMATION
  Report Type: Spontaneous
  Country: US (occurrence: US)
  Receive Date: 20171219
  Receipt Date: 20171219
  Transmission Date: 20180321
  Serious: Yes (Other)
  Sender: FDA-Public Use
  Company Number: US-OTSUKA-16514762

PATIENT
  Age: 53 Year
  Sex: Female
  Weight: 99.77 kg

DRUGS (1)
  1. ABILIFY [Suspect]
     Active Substance: ARIPIPRAZOLE
     Indication: BIPOLAR DISORDER
     Dosage: INTERRUPTED AND RESTARTED IN 2009
     Route: 065
     Dates: start: 200805, end: 2009

REACTIONS (4)
  - Mania [Unknown]
  - Hypotension [Unknown]
  - Drug ineffective [Unknown]
  - Weight increased [Unknown]

NARRATIVE: CASE EVENT DATE: 200805
